FAERS Safety Report 23849850 (Version 1)
Quarter: 2024Q2

REPORT INFORMATION
  Report Type: Spontaneous
  Country: PT (occurrence: PT)
  Receive Date: 20240513
  Receipt Date: 20240513
  Transmission Date: 20240716
  Serious: Yes (Other)
  Sender: FDA-Public Use
  Company Number: PT-002147023-NVSC2024PT097572

PATIENT
  Age: 21 Year
  Sex: Female

DRUGS (1)
  1. KESIMPTA [Suspect]
     Active Substance: OFATUMUMAB
     Indication: Relapsing-remitting multiple sclerosis
     Dosage: UNK
     Route: 065

REACTIONS (4)
  - Spinal cord disorder [Unknown]
  - Right hemisphere deficit syndrome [Unknown]
  - Skin lesion [Unknown]
  - Treatment failure [Unknown]

NARRATIVE: CASE EVENT DATE: 20230901
